FAERS Safety Report 5956857-6 (Version None)
Quarter: 2008Q4

REPORT INFORMATION
  Report Type: 
  Country: None (occurrence: None)
  Receive Date: 20081106
  Receipt Date: 20071108
  Transmission Date: 20090506
  Serious: Yes (Disabling)
  Sender: FDA-Public Use
  Company Number: US200709004661

PATIENT
  Age: 64 Year
  Sex: Female

DRUGS (7)
  1. PROZAC [Suspect]
     Indication: DEPRESSION
     Dosage: 80 MG, DAILY (1/D)
     Dates: start: 19870101
  2. SYNTHROID [Concomitant]
  3. PREMARIN (ESTROGENS CONJUGATED, MEDROGESTONE) [Concomitant]
  4. LASIX [Concomitant]
  5. POTASSIUM CHLORIDE (POTASSIUM CHLORIDE UNKNOWN FORMULATION) [Concomitant]
  6. REQUIP [Concomitant]
  7. HYDROCODONE (HYDROCODONE) [Concomitant]

REACTIONS (6)
  - ARTHRALGIA [None]
  - DERMATITIS CONTACT [None]
  - DISABILITY [None]
  - STRESS [None]
  - THINKING ABNORMAL [None]
  - WEIGHT INCREASED [None]
